FAERS Safety Report 5351317-8 (Version None)
Quarter: 2007Q2

REPORT INFORMATION
  Report Type: 
  Country: None (occurrence: None)
  Receive Date: 20070608
  Receipt Date: 20070601
  Transmission Date: 20071010
  Serious: Yes (Hospitalization)
  Sender: FDA-Public Use
  Company Number: US-ROXANE LABORATORIES, INC-2007-BP-07539RO

PATIENT
  Age: 65 Year
  Sex: Female

DRUGS (1)
  1. MEGESTROL ACETATE [Suspect]
     Indication: APPETITE DISORDER

REACTIONS (6)
  - ADRENAL INSUFFICIENCY [None]
  - ASTHENIA [None]
  - HYPOTENSION [None]
  - NAUSEA [None]
  - PORTAL VEIN THROMBOSIS [None]
  - VOMITING [None]
